FAERS Safety Report 10011680 (Version 2)
Quarter: 2014Q1

REPORT INFORMATION
  Report Type: Spontaneous
  Country: IT (occurrence: IT)
  Receive Date: 20140314
  Receipt Date: 20140321
  Transmission Date: 20141002
  Serious: Yes (Other)
  Sender: FDA-Public Use
  Company Number: IT-009507513-1403ITA005104

PATIENT
  Age: 59 Year
  Sex: Male
  Weight: 74.5 kg

DRUGS (4)
  1. VICTRELIS [Suspect]
     Indication: ANTIVIRAL TREATMENT
     Dosage: 4 CAPSULES, TID, 2400MG TOTAL DAILY DOSE
     Route: 048
     Dates: start: 20131011
  2. COPEGUS [Interacting]
     Indication: ANTIVIRAL TREATMENT
     Dosage: 6 CAPSULES, DAILY DOSE 1200MG
     Route: 048
     Dates: start: 20130909, end: 20131028
  3. COPEGUS [Interacting]
     Dosage: 3 CAPSULES, DAILY DOSE: 600 MG
     Route: 048
     Dates: start: 20131029
  4. PEGASYS [Interacting]
     Indication: ANTIVIRAL TREATMENT
     Dosage: 180 MICROGRAM, WEEKLY
     Route: 058
     Dates: start: 20130909

REACTIONS (2)
  - Pancytopenia [Recovering/Resolving]
  - Drug interaction [Unknown]
